FAERS Safety Report 7630052-7 (Version None)
Quarter: 2011Q3

REPORT INFORMATION
  Report Type: 
  Country: None (occurrence: None)
  Receive Date: 20110715
  Receipt Date: 20110506
  Transmission Date: 20111222
  Serious: Yes (Hospitalization)
  Sender: FDA-Public Use
  Company Number: 2011-164

PATIENT
  Age: 42 Year
  Sex: Female
  Weight: 65 kg

DRUGS (4)
  1. MORPHINE SULFATE [Suspect]
     Dosage: 0.595 MG, ONCE/HOUR
  2. NAROPIN [Suspect]
     Dosage: 1.06 MG, ONCE/HOUR, INTRATHECAL
     Route: 037
  3. CLONIDINE HCL [Suspect]
     Dosage: 0.85 MG, ONCE/HOUR, INTRATHECAL
     Route: 037
  4. PRIALT [Suspect]
     Indication: PAIN
     Dosage: 0.14 UG, ONCE/HOUR, INTRATHECAL
     Route: 037
     Dates: start: 20110222, end: 20110328

REACTIONS (5)
  - AGITATION [None]
  - CONFUSIONAL STATE [None]
  - RESTLESSNESS [None]
  - INSOMNIA [None]
  - APHASIA [None]
